FAERS Safety Report 6821021-5 (Version None)
Quarter: 2010Q3

REPORT INFORMATION
  Report Type: 
  Country: None (occurrence: None)
  Receive Date: 20100707
  Receipt Date: 20071228
  Transmission Date: 20110219
  Serious: No
  Sender: FDA-Public Use
  Company Number: US-PFIZER INC-2008000575

PATIENT
  Sex: Female
  Weight: 52.16 kg

DRUGS (4)
  1. ZOLOFT [Suspect]
     Indication: DEPRESSION
     Dates: start: 19940101
  2. ZOLOFT [Suspect]
     Indication: ANXIETY
  3. LEVOXYL [Concomitant]
  4. SIMVASTATIN [Concomitant]

REACTIONS (2)
  - ANGER [None]
  - INSOMNIA [None]
